FAERS Safety Report 21750709 (Version 2)
Quarter: 2023Q1

REPORT INFORMATION
  Report Type: Report from Study
  Country: TR (occurrence: TR)
  Receive Date: 20221219
  Receipt Date: 20230111
  Transmission Date: 20230418
  Serious: Yes (Other)
  Sender: FDA-Public Use
  Company Number: TR-ABBVIE-4227266

PATIENT
  Sex: Female
  Weight: 85 kg

DRUGS (6)
  1. CARBIDOPA\LEVODOPA [Suspect]
     Active Substance: CARBIDOPA\LEVODOPA
     Indication: Parkinson^s disease
     Dosage: MORNING DOSE (ML): 7.00 CONTINUOUS DOSE (ML): 3.00 EXTRA DOSE (ML): 1.50
     Dates: start: 20180531
  2. CARBIDOPA\LEVODOPA [Suspect]
     Active Substance: CARBIDOPA\LEVODOPA
     Dosage: MORNING DOSE (ML): 7.00 CONTINUOUS DOSE (ML): 3.00 EXTRA DOSE (ML): 1.50;?DUODOPA PUMP LOT NUMBER...
     Route: 050
     Dates: start: 20180531
  3. RAMIPRIL [Concomitant]
     Active Substance: RAMIPRIL
     Indication: Hypertension
     Dosage: 25 MILLIGRAM
     Route: 048
     Dates: start: 2015
  4. Delix [Concomitant]
     Indication: Hypertension
     Dosage: FORM STRENGTH: 25 MILLIGRAM
     Route: 048
     Dates: start: 2015
  5. AMANTADINE SULFATE [Concomitant]
     Active Substance: AMANTADINE SULFATE
     Indication: Parkinson^s disease
     Dosage: 200 MILLIGRAM; FORM STRENGTH: 100 MILLIGRAM
     Route: 048
     Dates: start: 2017
  6. CEFTRIAXONE [Concomitant]
     Active Substance: CEFTRIAXONE
     Indication: Stoma site discharge
     Dosage: 2 GRAM
     Route: 042
     Dates: end: 20221230

REACTIONS (3)
  - Stoma site discharge [Not Recovered/Not Resolved]
  - Device physical property issue [Unknown]
  - Stoma site erythema [Not Recovered/Not Resolved]
